FAERS Safety Report 10627138 (Version 4)
Quarter: 2015Q1

REPORT INFORMATION
  Report Type: Report from Study
  Country: None (occurrence: JP)
  Receive Date: 20141204
  Receipt Date: 20150217
  Transmission Date: 20150720
  Serious: Yes (Death)
  Sender: FDA-Public Use
  Company Number: JP-BAUSCH-SYM-2013-14279

PATIENT
  Age: 63 Year
  Sex: Male
  Weight: 58 kg

DRUGS (11)
  1. CHOREAZINE [Suspect]
     Active Substance: TETRABENAZINE
     Indication: HUNTINGTON^S DISEASE
     Dosage: 50 MG DAILY IN THREE DIVIDED DOSES
     Route: 048
     Dates: start: 20130722, end: 20130920
  2. CHOREAZINE [Suspect]
     Active Substance: TETRABENAZINE
     Route: 048
     Dates: start: 20130701, end: 20130707
  3. EBASTINE [Concomitant]
     Active Substance: EBASTINE
     Indication: PRURITUS
     Dates: end: 20130920
  4. RISPERDAL [Concomitant]
     Active Substance: RISPERIDONE
     Indication: PRODUCT USED FOR UNKNOWN INDICATION
     Dates: end: 20130920
  5. BENECID [Concomitant]
     Active Substance: PROBENECID
     Indication: HYPERURICAEMIA
     Dates: end: 20130920
  6. MAGMITT [Concomitant]
     Active Substance: MAGNESIUM OXIDE
     Indication: HYPERURICAEMIA
     Dates: end: 20130920
  7. CHOREAZINE [Suspect]
     Active Substance: TETRABENAZINE
     Route: 048
     Dates: start: 20130708, end: 20130721
  8. DEPAKENE [Concomitant]
     Active Substance: VALPROIC ACID
     Indication: PRODUCT USED FOR UNKNOWN INDICATION
     Dates: start: 20110523, end: 20130920
  9. MECOBALAMIN [Concomitant]
     Active Substance: METHYLCOBALAMIN
     Indication: HYPERURICAEMIA
     Dates: end: 20130920
  10. CHOREAZINE [Suspect]
     Active Substance: TETRABENAZINE
     Route: 048
     Dates: start: 20130624, end: 20130630
  11. ZYPREXA [Concomitant]
     Active Substance: OLANZAPINE
     Indication: PRODUCT USED FOR UNKNOWN INDICATION
     Dates: start: 20110518, end: 20130920

REACTIONS (3)
  - Ileus [Fatal]
  - Gallbladder cancer [Fatal]
  - Pneumonia [None]

NARRATIVE: CASE EVENT DATE: 20130915
